FAERS Safety Report 9775250 (Version 1)
Quarter: 2013Q4

REPORT INFORMATION
  Report Type: Spontaneous
  Country: US (occurrence: US)
  Receive Date: 20131220
  Receipt Date: 20131220
  Transmission Date: 20140711
  Serious: No
  Sender: FDA-Public Use
  Company Number: US-B.I. PHARMACEUTICALS,INC./RIDGEFIELD-2013-BI-40229BP

PATIENT
  Age: 69 Year
  Sex: Female
  Weight: 104 kg

DRUGS (20)
  1. SPIRIVA [Suspect]
     Indication: CHRONIC OBSTRUCTIVE PULMONARY DISEASE
     Dosage: 18 MCG
     Route: 055
     Dates: start: 2009
  2. RANITIDINE [Concomitant]
     Indication: GASTROOESOPHAGEAL REFLUX DISEASE
     Route: 048
     Dates: start: 1998
  3. SYMBICORT [Concomitant]
     Indication: CHRONIC OBSTRUCTIVE PULMONARY DISEASE
     Dosage: 2 PUF
     Route: 055
     Dates: start: 2008
  4. VITAMIN B 12 [Concomitant]
     Indication: VITAMIN B12 DEFICIENCY
     Dosage: 1000 MG
     Route: 048
     Dates: start: 2010
  5. FERROUS SULFATE [Concomitant]
     Indication: IRON DEFICIENCY
     Dosage: 325 MG
     Route: 048
     Dates: start: 2010
  6. CITALOPRAM [Concomitant]
     Indication: DEPRESSION
     Dosage: 20 MG
     Route: 048
     Dates: start: 201308
  7. LUNESTA [Concomitant]
     Indication: INSOMNIA
     Dosage: 3 MG
     Route: 048
     Dates: start: 2012
  8. OXYBUTYNIN [Concomitant]
     Indication: BLADDER DISORDER
     Dosage: 5 MG
     Route: 048
     Dates: start: 1980
  9. APRISO [Concomitant]
     Indication: COLITIS ULCERATIVE
     Dosage: 0.375 MG
     Route: 048
     Dates: start: 201311
  10. IMURAN [Concomitant]
     Indication: COLITIS ULCERATIVE
     Dosage: 50 MG
     Route: 048
     Dates: start: 1990
  11. CHERATUSSIN [Concomitant]
     Indication: COUGH
     Dosage: 10 ML
     Route: 048
     Dates: start: 2012
  12. SULFAMETH TRIMETHOPRIM [Concomitant]
     Indication: URINARY TRACT INFECTION
     Dosage: DOSE PER APPLICATION: 800MG/160MG, DAILY DOSE: 1600MG/320MG
     Route: 048
     Dates: start: 2010
  13. FLAGYL [Concomitant]
     Indication: COLITIS ULCERATIVE
     Dosage: 250 MG
     Route: 048
     Dates: start: 1990
  14. WELLBUTRIN SR [Concomitant]
     Indication: DEPRESSION
     Dosage: 150 MG
     Route: 048
     Dates: start: 1988
  15. LASIX [Concomitant]
     Indication: DIURETIC THERAPY
     Dosage: 20 MG
     Route: 048
     Dates: start: 1987
  16. POTASSIUM CHLORIDE [Concomitant]
     Indication: ELECTROLYTE SUBSTITUTION THERAPY
     Dosage: 10 MEQ
     Route: 048
     Dates: start: 1993
  17. VITAMIN D [Concomitant]
     Indication: SUPPLEMENTATION THERAPY
     Dosage: 1000 U
     Route: 048
     Dates: start: 2010
  18. PROCARDIA XL [Concomitant]
     Indication: HYPERTENSION
     Dosage: 120 MG
     Route: 048
     Dates: start: 1987
  19. FLONASE [Concomitant]
     Indication: CHRONIC OBSTRUCTIVE PULMONARY DISEASE
     Dosage: 100 MCG
     Route: 045
     Dates: start: 2010
  20. REQUIP [Concomitant]
     Indication: RESTLESS LEGS SYNDROME
     Dosage: 1 MG
     Route: 048
     Dates: start: 1993

REACTIONS (4)
  - Anxiety [Recovered/Resolved]
  - Vomiting [Recovered/Resolved]
  - Respiratory tract oedema [Recovered/Resolved]
  - Dyspnoea [Recovered/Resolved]
